FAERS Safety Report 5506327-4 (Version None)
Quarter: 2007Q4

REPORT INFORMATION
  Report Type: 
  Country: None (occurrence: None)
  Receive Date: 20071101
  Receipt Date: 20071101
  Transmission Date: 20080405
  Serious: No
  Sender: FDA-Public Use
  Company Number: None

PATIENT
  Age: 34 Year
  Sex: Female
  Weight: 74.8435 kg

DRUGS (1)
  1. SPIRONOLACTONE [Suspect]
     Indication: ACNE
     Dosage: 25MG 1QD PO
     Route: 048
     Dates: start: 20020801, end: 20041029

REACTIONS (1)
  - PAPILLARY THYROID CANCER [None]
